FAERS Safety Report 9400408 (Version 1)
Quarter: 2013Q3

REPORT INFORMATION
  Report Type: Spontaneous
  Country: IT (occurrence: IT)
  Receive Date: 20130715
  Receipt Date: 20130715
  Transmission Date: 20140515
  Serious: Yes (Death)
  Sender: FDA-Public Use
  Company Number: IT-MYLANLABS-2013S1014915

PATIENT
  Age: 48 Year
  Sex: Female

DRUGS (3)
  1. TRAMADOL [Suspect]
     Indication: PRODUCT USED FOR UNKNOWN INDICATION
     Dosage: CONSIDERABLE AMOUNT PRESUMED
     Route: 048
  2. TRAMADOL [Suspect]
     Indication: PRODUCT USED FOR UNKNOWN INDICATION
     Route: 065
  3. CARBAMAZEPINE [Concomitant]
     Indication: PRODUCT USED FOR UNKNOWN INDICATION
     Route: 065

REACTIONS (7)
  - Overdose [Fatal]
  - Toxicity to various agents [Fatal]
  - Respiratory depression [Fatal]
  - Drug abuse [Not Recovered/Not Resolved]
  - Bradycardia [Fatal]
  - Cardiac arrest [Fatal]
  - Completed suicide [Fatal]
